FAERS Safety Report 6420595-6 (Version None)
Quarter: 2009Q4

REPORT INFORMATION
  Report Type: 
  Country: None (occurrence: None)
  Receive Date: 20091029
  Receipt Date: 20091020
  Transmission Date: 20100525
  Serious: Yes (Hospitalization)
  Sender: FDA-Public Use
  Company Number: FR-GENENTECH-282086

PATIENT
  Sex: Male

DRUGS (11)
  1. RITUXIMAB [Suspect]
     Indication: LYMPHOMA
     Dosage: 1000 MG, UNK
     Route: 042
     Dates: start: 20080521
  2. RITUXIMAB [Suspect]
     Dosage: 930 MG, UNK
     Dates: start: 20080618
  3. RITUXIMAB [Suspect]
     Dosage: 930 MG, UNK
     Dates: start: 20080716
  4. RITUXIMAB [Suspect]
     Dosage: 930 MG, UNK
     Dates: start: 20080909
  5. FLUDARABINE [Suspect]
     Indication: DRUG USE FOR UNKNOWN INDICATION
     Dosage: UNK
     Dates: start: 20080521
  6. BACTRIM [Suspect]
     Indication: INFECTION PROPHYLAXIS
     Dosage: 1 TABLET, UNK
     Route: 048
  7. ENDOXAN [Concomitant]
     Indication: DRUG USE FOR UNKNOWN INDICATION
     Dosage: UNK
     Dates: start: 20080521
  8. CLOPIDOGREL [Concomitant]
     Indication: DRUG USE FOR UNKNOWN INDICATION
     Dosage: UNK
     Dates: start: 20060101
  9. TEVETEN [Concomitant]
     Indication: DRUG USE FOR UNKNOWN INDICATION
     Dosage: UNK
     Dates: start: 20060101
  10. LIPANTHYL [Concomitant]
     Indication: DRUG USE FOR UNKNOWN INDICATION
     Dosage: UNK
     Dates: start: 20060101
  11. EURELIX [Concomitant]
     Indication: DRUG USE FOR UNKNOWN INDICATION
     Dosage: UNK
     Dates: start: 20060101

REACTIONS (7)
  - AGRANULOCYTOSIS [None]
  - ANAEMIA [None]
  - BRONCHITIS [None]
  - DRUG INTERACTION [None]
  - LUNG INFECTION [None]
  - LYMPHOCYTE COUNT DECREASED [None]
  - PLATELET COUNT DECREASED [None]
